FAERS Safety Report 21009658 (Version 1)
Quarter: 2022Q2

REPORT INFORMATION
  Report Type: Spontaneous
  Country: US (occurrence: US)
  Receive Date: 20220627
  Receipt Date: 20220627
  Transmission Date: 20220721
  Serious: No
  Sender: FDA-Public Use
  Company Number: US-PFIZER INC-202200891404

PATIENT
  Age: 47 Year
  Sex: Female

DRUGS (1)
  1. XELJANZ [Suspect]
     Active Substance: TOFACITINIB CITRATE
     Dosage: 5 MG, 2X/DAY (TWICE A DAY)
     Route: 048
     Dates: start: 201910

REACTIONS (4)
  - Gastrointestinal tract irritation [Not Recovered/Not Resolved]
  - Muscle spasms [Unknown]
  - Condition aggravated [Recovered/Resolved]
  - Diarrhoea [Unknown]
